FAERS Safety Report 4627223-0 (Version None)
Quarter: 2005Q1

REPORT INFORMATION
  Report Type: 
  Country: None (occurrence: None)
  Receive Date: 20050331
  Receipt Date: 20050318
  Transmission Date: 20050727
  Serious: Yes (Hospitalization)
  Sender: FDA-Public Use
  Company Number: 231066K05USA

PATIENT
  Age: 35 Year
  Sex: Male

DRUGS (2)
  1. REBIF [Suspect]
     Indication: MULTIPLE SCLEROSIS
     Dosage: 44 MCG, 3 IN 1 WEEKS, SUBCUTANEOUS
     Route: 058
     Dates: start: 20030318
  2. ALEVE [Concomitant]

REACTIONS (9)
  - CHILLS [None]
  - FEELING ABNORMAL [None]
  - HEADACHE [None]
  - INFLUENZA LIKE ILLNESS [None]
  - MYALGIA [None]
  - PYREXIA [None]
  - SINUSITIS [None]
  - TREATMENT NONCOMPLIANCE [None]
  - VOMITING [None]
